FAERS Safety Report 10905680 (Version 1)
Quarter: 2015Q1

REPORT INFORMATION
  Report Type: Report from Study
  Country: US (occurrence: US)
  Receive Date: 20150311
  Receipt Date: 20150311
  Transmission Date: 20150721
  Serious: Yes (Hospitalization)
  Sender: FDA-Public Use
  Company Number: US-SANOFI-AVENTIS-2012SA033507

PATIENT
  Age: 40 Year
  Sex: Male
  Weight: 141 kg

DRUGS (13)
  1. PLAVIX [Suspect]
     Active Substance: CLOPIDOGREL BISULFATE
     Indication: CORONARY ARTERY DISEASE
     Route: 048
     Dates: start: 20100427
  2. BARE METAL STENT [Suspect]
     Active Substance: UNSPECIFIED INGREDIENT
     Indication: CORONARY ARTERY DISEASE
     Dates: start: 20100426, end: 20100426
  3. SIMVASTATIN. [Concomitant]
     Active Substance: SIMVASTATIN
  4. DIOVAN HCT [Concomitant]
     Active Substance: HYDROCHLOROTHIAZIDE\VALSARTAN
  5. NITRO [Concomitant]
     Active Substance: NITROGLYCERIN
  6. PLAVIX [Suspect]
     Active Substance: CLOPIDOGREL BISULFATE
     Indication: CORONARY ARTERY DISEASE
     Route: 048
     Dates: start: 20100426, end: 20100426
  7. ASPIRIN. [Suspect]
     Active Substance: ASPIRIN
     Indication: CORONARY ARTERY DISEASE
     Route: 065
     Dates: start: 20100426
  8. FISH OIL [Concomitant]
     Active Substance: FISH OIL
  9. NADOLOL. [Concomitant]
     Active Substance: NADOLOL
  10. METFORMIN [Concomitant]
     Active Substance: METFORMIN HYDROCHLORIDE
  11. HUMULIN NOS [Concomitant]
     Active Substance: INSULIN HUMAN
  12. LANTUS [Concomitant]
     Active Substance: INSULIN GLARGINE
  13. SALBUTAMOL SULFATE/IPRATROPIUM BROMIDE [Concomitant]

REACTIONS (2)
  - Retinal detachment [Recovered/Resolved]
  - Retinal haemorrhage [Recovered/Resolved]

NARRATIVE: CASE EVENT DATE: 20120110
